FAERS Safety Report 7530712-2 (Version None)
Quarter: 2011Q2

REPORT INFORMATION
  Report Type: 
  Country: None (occurrence: None)
  Receive Date: 20110607
  Receipt Date: 20110601
  Transmission Date: 20111010
  Serious: Yes (Hospitalization)
  Sender: FDA-Public Use
  Company Number: IT-PFIZER INC-2011120386

PATIENT
  Age: 48 Year
  Sex: Female

DRUGS (1)
  1. IBUPROFEN [Suspect]
     Indication: HEADACHE
     Dosage: 1 UNIT DOSE TOTAL
     Route: 048
     Dates: start: 20110530, end: 20110530

REACTIONS (3)
  - EYE PRURITUS [None]
  - PERIORBITAL OEDEMA [None]
  - LIP OEDEMA [None]
